FAERS Safety Report 12511517 (Version 1)
Quarter: 2016Q2

REPORT INFORMATION
  Report Type: Spontaneous
  Country: IN (occurrence: IN)
  Receive Date: 20160629
  Receipt Date: 20160629
  Transmission Date: 20160815
  Serious: Yes (Other)
  Sender: FDA-Public Use
  Company Number: PHHY2016IN086158

PATIENT
  Sex: Male

DRUGS (7)
  1. CLOZAPINE. [Suspect]
     Active Substance: CLOZAPINE
     Dosage: MOTHER DSOE: INCREASED UP TO 400 MG/DAY
     Route: 064
  2. GONADOTROPHIN HUMAN MENOPAUSAL [Suspect]
     Active Substance: GONADOTROPHIN, CHORIONIC
     Indication: FOETAL EXPOSURE DURING PREGNANCY
     Dosage: MOTHER DOSE: 150 MG
     Route: 064
  3. CLOZAPINE. [Suspect]
     Active Substance: CLOZAPINE
     Indication: FOETAL EXPOSURE DURING PREGNANCY
     Dosage: MOTHER DOSE: UNKNOWN
     Route: 064
  4. FOLIC ACID. [Suspect]
     Active Substance: FOLIC ACID
     Indication: FOETAL EXPOSURE DURING PREGNANCY
     Route: 064
  5. PREGNENOLONE [Suspect]
     Active Substance: PREGNENOLONE
     Indication: FOETAL EXPOSURE DURING PREGNANCY
     Dosage: MOTHER DOSE: 10 MG
     Route: 064
  6. CLOZAPINE. [Suspect]
     Active Substance: CLOZAPINE
     Dosage: MOTHER DOSE: 200 MG/DAY
     Route: 064
  7. HUMAN CHORIONIC GONADOTROPIN [Suspect]
     Active Substance: GONADOTROPHIN, CHORIONIC
     Indication: FOETAL EXPOSURE DURING PREGNANCY
     Dosage: MOTHER DOSE: 5000 IU
     Route: 064

REACTIONS (4)
  - Foetal exposure during pregnancy [Unknown]
  - Caesarean section [None]
  - Macrocephaly [Unknown]
  - Transient tachypnoea of the newborn [Recovered/Resolved]
